FAERS Safety Report 12120025 (Version 4)
Quarter: 2016Q1

REPORT INFORMATION
  Report Type: Report from Study
  Country: US (occurrence: US)
  Receive Date: 20160226
  Receipt Date: 20160325
  Transmission Date: 20160526
  Serious: Yes (Hospitalization, Other)
  Sender: FDA-Public Use
  Company Number: US-BIOGEN-2016BI00193923

PATIENT
  Sex: Female

DRUGS (1)
  1. AVONEX [Suspect]
     Active Substance: INTERFERON BETA-1A
     Indication: MULTIPLE SCLEROSIS
     Route: 065

REACTIONS (18)
  - Pyrexia [Recovered/Resolved]
  - Aphasia [Not Recovered/Not Resolved]
  - Musculoskeletal pain [Not Recovered/Not Resolved]
  - Amnesia [Not Recovered/Not Resolved]
  - Nephrectomy [Recovered/Resolved]
  - Respiratory failure [Recovered/Resolved]
  - Cognitive disorder [Unknown]
  - Surgery [Unknown]
  - Vision blurred [Not Recovered/Not Resolved]
  - Dysphemia [Not Recovered/Not Resolved]
  - Brain injury [Not Recovered/Not Resolved]
  - Renal failure [Recovered/Resolved]
  - Coma [Unknown]
  - Influenza like illness [Unknown]
  - Renal disorder [Not Recovered/Not Resolved]
  - Myocardial infarction [Recovered/Resolved]
  - Apparent death [Recovered/Resolved]
  - Blindness [Unknown]

NARRATIVE: CASE EVENT DATE: 2010
